FAERS Safety Report 20424268 (Version 1)
Quarter: 2022Q1

REPORT INFORMATION
  Report Type: Report from Study
  Country: US (occurrence: US)
  Receive Date: 20220203
  Receipt Date: 20220203
  Transmission Date: 20220423
  Serious: Yes (Other)
  Sender: FDA-Public Use
  Company Number: US-EXELIXIS-CABO-21041584

PATIENT
  Age: 57 Year
  Sex: Male

DRUGS (5)
  1. CABOMETYX [Suspect]
     Active Substance: CABOZANTINIB S-MALATE
     Indication: Renal cancer
     Dosage: 40 MG, QD
     Route: 048
     Dates: start: 20210525, end: 20210616
  2. CABOMETYX [Suspect]
     Active Substance: CABOZANTINIB S-MALATE
     Dosage: 40 MG, QD
     Route: 048
     Dates: start: 202106
  3. DILTIAZEM [Suspect]
     Active Substance: DILTIAZEM
     Indication: Blood pressure increased
     Dosage: UNK
     Dates: start: 20210707
  4. CLONIDINE [Concomitant]
     Active Substance: CLONIDINE
     Dosage: UNK
  5. TRAZODONE [Concomitant]
     Active Substance: TRAZODONE HYDROCHLORIDE
     Dosage: UNK

REACTIONS (14)
  - Blood pressure increased [Recovering/Resolving]
  - Weight decreased [Unknown]
  - Neuropathy peripheral [Unknown]
  - Hypoaesthesia oral [Recovered/Resolved]
  - Ageusia [Unknown]
  - Drug interaction [Unknown]
  - Back pain [Unknown]
  - Constipation [Unknown]
  - Rash erythematous [Recovered/Resolved]
  - Decreased appetite [Unknown]
  - Epistaxis [Recovered/Resolved]
  - Fatigue [Recovered/Resolved]
  - Dyspnoea [Recovered/Resolved]
  - Abdominal pain [Unknown]

NARRATIVE: CASE EVENT DATE: 20210615
